FAERS Safety Report 20300376 (Version 1)
Quarter: 2022Q1

REPORT INFORMATION
  Report Type: Spontaneous
  Country: US (occurrence: US)
  Receive Date: 20220105
  Receipt Date: 20220105
  Transmission Date: 20220423
  Serious: Yes (Death, Hospitalization, Other)
  Sender: FDA-Public Use
  Company Number: US-GLAXOSMITHKLINE-US2022GSK000684

PATIENT
  Age: 16 Month
  Sex: Male

DRUGS (1)
  1. BUPROPION HYDROCHLORIDE [Suspect]
     Active Substance: BUPROPION HYDROCHLORIDE
     Indication: Product used for unknown indication
     Dosage: UNK
     Route: 048

REACTIONS (8)
  - Toxicity to various agents [Fatal]
  - Seizure [Unknown]
  - Ventricular tachycardia [Unknown]
  - Bradycardia [Unknown]
  - Epistaxis [Unknown]
  - Mouth haemorrhage [Unknown]
  - Pulseless electrical activity [Unknown]
  - Accidental exposure to product by child [Unknown]
